FAERS Safety Report 8157861-2 (Version None)
Quarter: 2012Q1

REPORT INFORMATION
  Report Type: 
  Country: None (occurrence: None)
  Receive Date: 20120222
  Receipt Date: 20110630
  Transmission Date: 20120608
  Serious: No
  Sender: FDA-Public Use
  Company Number: PHEH2011US01418

PATIENT
  Sex: Female
  Weight: 65.7 kg

DRUGS (19)
  1. TASIGNA [Suspect]
     Indication: ACUTE LYMPHOCYTIC LEUKAEMIA
     Dosage: 400 MG, BID
     Route: 048
     Dates: start: 20090822
  2. ACYCLOVIR [Concomitant]
  3. MAGNESIUM [Concomitant]
  4. ALBUTEROL [Concomitant]
  5. NEURONTIN [Concomitant]
  6. LORAZEPAM [Concomitant]
  7. PROGRAF [Concomitant]
  8. PRILOSEC [Concomitant]
  9. DILTIAZEM HCL [Concomitant]
  10. ALPRAZOLAM [Concomitant]
  11. TEMSIROLIMUS [Concomitant]
  12. ACTIGALL [Concomitant]
  13. SULPHAMETHOXAZOLE [Concomitant]
  14. FLUCONAZOLE [Concomitant]
  15. VALTREX [Concomitant]
  16. PROZAC [Concomitant]
  17. BECLOMETHASONE DIPROPIONATE [Concomitant]
  18. HYDROMORPHONE HYDROCHLORIDE [Concomitant]
  19. BUDESONIDE [Concomitant]
     Dosage: UNK

REACTIONS (1)
  - HEPATIC ENZYME INCREASED [None]
